FAERS Safety Report 9151844 (Version 1)
Quarter: 2013Q1

REPORT INFORMATION
  Report Type: Spontaneous
  Country: US (occurrence: US)
  Receive Date: 20130308
  Receipt Date: 20130308
  Transmission Date: 20140127
  Serious: Yes (Death)
  Sender: FDA-Public Use
  Company Number: US-GLAXOSMITHKLINE-A1015017A

PATIENT
  Age: 51 Year
  Sex: Male

DRUGS (4)
  1. VOTRIENT [Suspect]
     Indication: MALIGNANT MELANOMA
     Dosage: 400MG PER DAY
     Route: 065
     Dates: start: 20121022, end: 20130213
  2. ONDANSETRON [Concomitant]
  3. LEVETIRACETAM [Concomitant]
  4. LOSARTAN [Concomitant]

REACTIONS (1)
  - Death [Fatal]
